FAERS Safety Report 16165294 (Version 2)
Quarter: 2019Q2

REPORT INFORMATION
  Report Type: Spontaneous
  Country: ES (occurrence: ES)
  Receive Date: 20190405
  Receipt Date: 20190518
  Transmission Date: 20190711
  Serious: Yes (Other)
  Sender: FDA-Public Use
  Company Number: ES-REGENERON PHARMACEUTICALS, INC.-2019-25660

PATIENT

DRUGS (6)
  1. EYLEA [Suspect]
     Active Substance: AFLIBERCEPT
     Indication: RETINAL VEIN OCCLUSION
     Dosage: BILATERAL, THREE LOADING DOSES
  2. EYLEA [Suspect]
     Active Substance: AFLIBERCEPT
     Dosage: BILATERAL., BIMONTHLY FOR A YEAR ( PATIENT RECEIVED A TOTAL OF SIX INJECTIONS).
  3. EYLEA [Suspect]
     Active Substance: AFLIBERCEPT
     Dosage: BILATERAL, Q8WK (MOST RECENT DOSE PRIOR TO EVENT ONSET)
  4. EYLEA [Suspect]
     Active Substance: AFLIBERCEPT
     Dosage: BILATERAL, Q8WK
  5. EYLEA [Suspect]
     Active Substance: AFLIBERCEPT
     Dosage: BILATERAL, MONTHLY
  6. EYLEA [Suspect]
     Active Substance: AFLIBERCEPT
     Dosage: BILATERAL, MONTHLY

REACTIONS (1)
  - Visual acuity reduced [Recovered/Resolved]
